FAERS Safety Report 9779525 (Version 2)
Quarter: 2014Q2

REPORT INFORMATION
  Report Type: Spontaneous
  Country: US (occurrence: US)
  Receive Date: 20131223
  Receipt Date: 20140626
  Transmission Date: 20141212
  Serious: No
  Sender: FDA-Public Use
  Company Number: US-PFIZER INC-2013364001

PATIENT
  Age: 70 Year
  Sex: Female
  Weight: 63.49 kg

DRUGS (3)
  1. CORTISONE [Suspect]
     Indication: BACK PAIN
     Dosage: UNK
  2. CORTISONE [Suspect]
     Indication: SCIATICA
  3. LYRICA [Suspect]
     Indication: FIBROMYALGIA
     Dosage: UNK

REACTIONS (1)
  - Fibromyalgia [Unknown]
